FAERS Safety Report 17710159 (Version 1)
Quarter: 2020Q2

REPORT INFORMATION
  Report Type: Spontaneous
  Country: IL (occurrence: IL)
  Receive Date: 20200427
  Receipt Date: 20200427
  Transmission Date: 20200714
  Serious: Yes (Death, Other)
  Sender: FDA-Public Use
  Company Number: IL-ROCHE-2588841

PATIENT
  Age: 82 Year
  Sex: Male

DRUGS (1)
  1. ACTEMRA [Suspect]
     Active Substance: TOCILIZUMAB
     Indication: CORONAVIRUS INFECTION
     Route: 042

REACTIONS (3)
  - Off label use [Unknown]
  - Intentional product use issue [Unknown]
  - Fungaemia [Fatal]
